FAERS Safety Report 19844633 (Version 1)
Quarter: 2021Q3

REPORT INFORMATION
  Report Type: Spontaneous
  Country: US (occurrence: US)
  Receive Date: 20210917
  Receipt Date: 20210917
  Transmission Date: 20211014
  Serious: Yes (Hospitalization, Other)
  Sender: FDA-Public Use
  Company Number: US-PIRAMAL PHARMA LIMITED-2021-PEL-000505

PATIENT

DRUGS (1)
  1. GABLOFEN [Suspect]
     Active Substance: BACLOFEN
     Indication: PRODUCT USED FOR UNKNOWN INDICATION
     Dosage: 286.1 MICROGRAM/DAY
     Route: 037

REACTIONS (14)
  - Toxicity to various agents [Unknown]
  - Implant site extravasation [Unknown]
  - Headache [Unknown]
  - Somnolence [Unknown]
  - Apnoea [Unknown]
  - Implant site swelling [Unknown]
  - Blood pressure increased [Unknown]
  - Muscle spasticity [Unknown]
  - Device breakage [Recovered/Resolved]
  - Asthenia [Unknown]
  - Nausea [Unknown]
  - Malaise [Unknown]
  - Autonomic dysreflexia [Unknown]
  - Muscle tightness [Unknown]
